FAERS Safety Report 10025142 (Version 3)
Quarter: 2014Q2

REPORT INFORMATION
  Report Type: Report from Study
  Country: US (occurrence: US)
  Receive Date: 20140320
  Receipt Date: 20140404
  Transmission Date: 20141212
  Serious: Yes (Hospitalization)
  Sender: FDA-Public Use
  Company Number: US-EXELIXIS-XL18413003568

PATIENT
  Age: 61 Year
  Sex: Male
  Weight: 101.1 kg

DRUGS (10)
  1. XL184 [Suspect]
     Indication: PROSTATE CANCER
     Dosage: 60 MG, QD
     Route: 048
     Dates: start: 20130805, end: 20130930
  2. XL184 [Suspect]
     Indication: PROSTATE CANCER
     Dosage: 5 MG, BID
     Route: 048
     Dates: start: 20130805, end: 20130930
  3. AMLODIPINE [Concomitant]
  4. ALPRAZOLAM [Concomitant]
  5. CITALOPRAM [Concomitant]
  6. HUMALOG [Concomitant]
  7. LANTUS [Concomitant]
  8. CRESTOR [Concomitant]
  9. TEMAZEPAM [Concomitant]
  10. TYLENOL [Concomitant]

REACTIONS (1)
  - Sinusitis [Recovered/Resolved]
